FAERS Safety Report 5780014-X (Version None)
Quarter: 2008Q2

REPORT INFORMATION
  Report Type: 
  Country: None (occurrence: None)
  Receive Date: 20080620
  Receipt Date: 20080617
  Transmission Date: 20081010
  Serious: Yes (Death, Other)
  Sender: FDA-Public Use
  Company Number: CZ-BRISTOL-MYERS SQUIBB COMPANY-14231005

PATIENT
  Age: 16 Year
  Sex: Male

DRUGS (2)
  1. ETOPOSIDE [Suspect]
     Indication: GLIOBLASTOMA
     Dosage: DOSE- 50 MG/M2 1-21 DAY
     Route: 048
  2. TEMOZOLOMIDE [Suspect]
     Indication: GLIOBLASTOMA
     Dosage: DOSE - 200 MG/M2 1-DAY 5, EVERY 28 DAYS
     Route: 048

REACTIONS (2)
  - FACIAL PALSY [None]
  - GLIOBLASTOMA MULTIFORME [None]
